FAERS Safety Report 5052583-9 (Version None)
Quarter: 2006Q3

REPORT INFORMATION
  Report Type: 
  Country: None (occurrence: None)
  Receive Date: 20060717
  Receipt Date: 20060529
  Transmission Date: 20061208
  Serious: Yes (Life-Threatening)
  Sender: FDA-Public Use
  Company Number: 2006JP001547

PATIENT
  Age: 62 Year
  Sex: Female

DRUGS (16)
  1. CEFAMEZIN [Suspect]
     Indication: POSTOPERATIVE CARE
     Dosage: 1G TWICE PER DAY
     Route: 042
     Dates: start: 20060411, end: 20060522
  2. GLYCEOL [Concomitant]
     Dates: start: 20060411, end: 20060414
  3. HEPARIN [Concomitant]
     Dates: start: 20060411, end: 20060413
  4. RADICUT [Concomitant]
     Dates: start: 20060412, end: 20060423
  5. DEXTRAN [Concomitant]
     Dates: start: 20060412, end: 20060419
  6. MANNITOL [Concomitant]
     Dates: start: 20060415, end: 20060523
  7. P N TWIN [Concomitant]
     Dates: start: 20060415, end: 20060518
  8. P N TWIN [Concomitant]
     Dates: start: 20060417, end: 20060522
  9. M.V.I. [Concomitant]
     Dates: start: 20060415, end: 20060522
  10. M.V.I. [Concomitant]
     Dates: start: 20060415, end: 20060522
  11. ELEMENMIC [Concomitant]
     Dates: start: 20060415, end: 20060522
  12. TRANSAMIN [Concomitant]
     Dates: start: 20060513, end: 20060515
  13. FAMOTIDINE [Concomitant]
     Dates: start: 20060513, end: 20060515
  14. GENERAL ANAESTHESIA [Concomitant]
     Dates: start: 20060411, end: 20060411
  15. TPN [Concomitant]
  16. CEPHEM ANTIBIOTICS [Concomitant]

REACTIONS (9)
  - CEREBRAL HAEMORRHAGE [None]
  - DEPRESSED LEVEL OF CONSCIOUSNESS [None]
  - HAEMORRHAGE [None]
  - HAEMORRHAGIC DIATHESIS [None]
  - INTERNATIONAL NORMALISED RATIO INCREASED [None]
  - INTRACRANIAL ANEURYSM [None]
  - POST PROCEDURAL HAEMORRHAGE [None]
  - RESPIRATORY ARREST [None]
  - VITAMIN K DEFICIENCY [None]
